FAERS Safety Report 7872605-7 (Version None)
Quarter: 2011Q4

REPORT INFORMATION
  Report Type: 
  Country: None (occurrence: None)
  Receive Date: 20111030
  Receipt Date: 20110429
  Transmission Date: 20120403
  Serious: No
  Sender: FDA-Public Use
  Company Number: US-AMGEN-USASP2011022462

PATIENT
  Age: 43 Year
  Sex: Female
  Weight: 74.83 kg

DRUGS (6)
  1. PROVENTIL                          /00139501/ [Concomitant]
     Dosage: 900 A?G, UNK
  2. OMEPRAZOLE [Concomitant]
     Dosage: 10 MG, UNK
     Route: 048
  3. ENBREL [Suspect]
     Indication: PRODUCT USED FOR UNKNOWN INDICATION
     Dosage: 50 MG, QWK
  4. VICODIN [Concomitant]
     Route: 048
  5. IBUPROFEN [Concomitant]
     Dosage: 800 MG, UNK
     Route: 048
  6. SULFASALAZINE [Concomitant]
     Dosage: 500 MG, UNK
     Route: 048

REACTIONS (1)
  - UPPER RESPIRATORY TRACT INFECTION [None]
